FAERS Safety Report 4284600-8 (Version None)
Quarter: 2004Q1

REPORT INFORMATION
  Report Type: 
  Country: None (occurrence: None)
  Receive Date: 20040130
  Receipt Date: 20040112
  Transmission Date: 20041129
  Serious: Yes (Hospitalization)
  Sender: FDA-Public Use
  Company Number: DSA_23763_2003

PATIENT
  Age: 48 Year
  Sex: Male

DRUGS (19)
  1. CARDIZEM [Suspect]
     Dosage: 30 MG QID PO, A FEW WEEKS
     Route: 048
     Dates: start: 19871201
  2. CARDIZEM [Suspect]
     Dosage: 60 MG QID PO
     Route: 048
  3. CARDIZEM CD [Suspect]
  4. CARDIZEM [Suspect]
     Indication: HYPERTENSION
     Dosage: 30 MG QID PO
     Route: 048
     Dates: start: 20031201, end: 20031221
  5. CARDIZEM [Suspect]
     Indication: HYPERTENSION
     Dosage: 60 MG QID PO
     Route: 048
     Dates: start: 20031221, end: 20031222
  6. PRINIVIL [Suspect]
     Indication: BLOOD PRESSURE
     Dosage: 40 MG Q DAY
     Dates: start: 20031216
  7. PRINIVIL [Suspect]
     Indication: BLOOD PRESSURE
     Dosage: 20 MG Q DAY
     Dates: end: 20031215
  8. HYDROCHLOROTHIAZIDE [Suspect]
     Indication: HYPERTENSION
     Dosage: 12.5 MG Q DAY
     Dates: end: 20031213
  9. HYDROCHLOROTHIAZIDE [Suspect]
     Indication: HYPERTENSION
     Dosage: 25 MG Q DAY
     Dates: start: 20031214, end: 20031217
  10. HYDROCHLOROTHIAZIDE [Suspect]
     Indication: HYPERTENSION
     Dosage: 12.5 MG Q DAY
     Dates: start: 20031221
  11. ASPIRIN [Concomitant]
  12. ATIVAN [Concomitant]
  13. BENADRYL [Concomitant]
  14. LIPITOR [Concomitant]
  15. PLAVIX [Concomitant]
  16. ZETIA [Concomitant]
  17. VITAMIN B [Concomitant]
  18. FIORICET [Concomitant]
  19. TYLENOL (CAPLET) [Concomitant]

REACTIONS (14)
  - ARTERIAL RESTENOSIS [None]
  - ASTHENIA [None]
  - ASTHMA [None]
  - CHEST PAIN [None]
  - CONSTIPATION [None]
  - DISEASE RECURRENCE [None]
  - DRUG INTERACTION [None]
  - DYSPNOEA EXACERBATED [None]
  - HYPERTENSION [None]
  - MUSCULOSKELETAL STIFFNESS [None]
  - MYALGIA [None]
  - MYOCARDIAL INFARCTION [None]
  - POST PROCEDURAL COMPLICATION [None]
  - SURGICAL PROCEDURE REPEATED [None]
